FAERS Safety Report 8521202-9 (Version None)
Quarter: 2012Q3

REPORT INFORMATION
  Report Type: 
  Country: None (occurrence: None)
  Receive Date: 20120719
  Receipt Date: 20120713
  Transmission Date: 20120928
  Serious: Yes (Death, Other)
  Sender: FDA-Public Use
  Company Number: JP-ROCHE-720289

PATIENT
  Age: 79 Year
  Sex: Male

DRUGS (9)
  1. MABTHERA [Suspect]
     Indication: MANTLE CELL LYMPHOMA
     Dosage: 250 MG/M2, UNK
     Route: 042
  2. HYDROCORTONE [Concomitant]
     Dosage: UNK
  3. RABEPRAZOLE SODIUM [Concomitant]
     Indication: PROPHYLAXIS
     Dosage: 10 MG, QD
     Route: 048
  4. MABTHERA [Suspect]
     Dosage: 250 MG/M2, UNK
     Route: 042
  5. HYDROCORTONE [Concomitant]
     Indication: PREMEDICATION
     Dosage: UNK
  6. SULFAMETHOXAZOLE AND TRIMETHOPRIM [Concomitant]
     Dates: start: 20091016
  7. IBRITUMOMAB TIUXETAN [Suspect]
     Indication: MANTLE CELL LYMPHOMA
     Dosage: 130 MBQ, UNK DRUG NAME REPORTED AS IN-111 ZEVALIN.
     Route: 042
  8. IBRITUMOMAB TIUXETAN [Suspect]
     Dosage: 11.1 MBQ/KG, UNK DRUG NAME REPORTED AS: Y-90 ZEVALIN.
     Route: 042
  9. ITRACONAZOLE [Concomitant]
     Indication: PROPHYLAXIS
     Dosage: 200 MG, QD
     Route: 048

REACTIONS (2)
  - PLATELET COUNT DECREASED [None]
  - NEUTROPHIL COUNT DECREASED [None]
